FAERS Safety Report 7953828-5 (Version None)
Quarter: 2011Q4

REPORT INFORMATION
  Report Type: 
  Country: None (occurrence: None)
  Receive Date: 20111202
  Receipt Date: 20111122
  Transmission Date: 20120403
  Serious: Yes (Other)
  Sender: FDA-Public Use
  Company Number: US-US-EMD SERONO, INC.-7085582

PATIENT
  Sex: Male

DRUGS (2)
  1. REBIF [Suspect]
     Indication: RELAPSING-REMITTING MULTIPLE SCLEROSIS
     Route: 058
     Dates: start: 20060901
  2. REBIF [Suspect]
     Route: 058
     Dates: start: 20110512

REACTIONS (4)
  - MULTIPLE SCLEROSIS RELAPSE [None]
  - PARALYSIS [None]
  - MULTIPLE SCLEROSIS [None]
  - PAIN [None]
